FAERS Safety Report 20835614 (Version 3)
Quarter: 2022Q4

REPORT INFORMATION
  Report Type: Spontaneous
  Country: US (occurrence: US)
  Receive Date: 20220516
  Receipt Date: 20221209
  Transmission Date: 20230113
  Serious: No
  Sender: FDA-Public Use
  Company Number: US-PFIZER INC-202200691589

PATIENT
  Age: 89 Year
  Sex: Female

DRUGS (1)
  1. CIBINQO [Suspect]
     Active Substance: ABROCITINIB
     Indication: Dermatitis atopic
     Dosage: UNK
     Route: 048

REACTIONS (3)
  - Abdominal discomfort [Recovering/Resolving]
  - Illness [Recovering/Resolving]
  - Decreased appetite [Unknown]
